FAERS Safety Report 13925024 (Version 6)
Quarter: 2018Q1

REPORT INFORMATION
  Report Type: Report from Study
  Country: CA (occurrence: CA)
  Receive Date: 20170831
  Receipt Date: 20180227
  Transmission Date: 20180508
  Serious: Yes (Hospitalization, Other)
  Sender: FDA-Public Use
  Company Number: CA-JNJFOC-20170826369

PATIENT
  Sex: Male
  Weight: 75.75 kg

DRUGS (2)
  1. SIMPONI [Suspect]
     Active Substance: GOLIMUMAB
     Indication: RHEUMATOID ARTHRITIS
     Route: 058
     Dates: start: 20171024, end: 20171030
  2. SIMPONI [Suspect]
     Active Substance: GOLIMUMAB
     Indication: RHEUMATOID ARTHRITIS
     Dosage: STRENGTH = 50 MG
     Route: 058
     Dates: start: 20170330, end: 201707

REACTIONS (2)
  - Infection [Unknown]
  - Lung carcinoma cell type unspecified stage I [Unknown]

NARRATIVE: CASE EVENT DATE: 2017
